FAERS Safety Report 4447496-7 (Version None)
Quarter: 2004Q3

REPORT INFORMATION
  Report Type: 
  Country: None (occurrence: None)
  Receive Date: 20040823
  Receipt Date: 20040520
  Transmission Date: 20050211
  Serious: No
  Sender: FDA-Public Use
  Company Number: PHEH2004US05613

PATIENT
  Age: 60 Year
  Sex: Female

DRUGS (12)
  1. ZELNORM [Suspect]
     Indication: OESOPHAGEAL DISORDER
     Dosage: 6 MG BID ORAL
     Route: 048
     Dates: start: 20040515
  2. DUONEB (SALBUTAMOL SULFATE) [Concomitant]
  3. VENTOLIN [Concomitant]
  4. SINGULAIR ^DIECKMANN^ (MONTELUKAST SODIUM) [Concomitant]
  5. DYAZIDE [Concomitant]
  6. CENTRUM SILVER (ZINC, VITAMINS NOS, VITAMIN B NOS, RETINOL) [Concomitant]
  7. VITAMIN E [Concomitant]
  8. ADVAIR (SALMETEROL XINAFOATE) [Concomitant]
  9. TRANXENE [Concomitant]
  10. ATROVENT [Concomitant]
  11. ZYRTEC [Concomitant]
  12. VIACTIV [Concomitant]

REACTIONS (2)
  - HEADACHE [None]
  - RASH PRURITIC [None]
